FAERS Safety Report 20478879 (Version 1)
Quarter: 2022Q1

REPORT INFORMATION
  Report Type: 
  Country: None (occurrence: None)
  Receive Date: 20220216
  Receipt Date: 20220216
  Transmission Date: 20220424
  Serious: Yes (Other)
  Sender: FDA-Public Use
  Company Number: None

PATIENT
  Age: 22 Year
  Sex: Female

DRUGS (1)
  1. MYORISAN [Suspect]
     Active Substance: ISOTRETINOIN

REACTIONS (5)
  - Myalgia [Unknown]
  - Emotional disorder [Unknown]
  - Depression [Unknown]
  - Off label use [Not Recovered/Not Resolved]
  - Depressed mood [Unknown]
